FAERS Safety Report 6251905-0 (Version None)
Quarter: 2009Q2

REPORT INFORMATION
  Report Type: 
  Country: None (occurrence: None)
  Receive Date: 20090630
  Receipt Date: 20090626
  Transmission Date: 20091009
  Serious: Yes (Hospitalization, Other)
  Sender: FDA-Public Use
  Company Number: US-GILEAD-2009-0022754

PATIENT
  Sex: Female

DRUGS (1)
  1. LETAIRIS [Suspect]
     Indication: PULMONARY ARTERIAL HYPERTENSION
     Route: 048
     Dates: start: 20080911

REACTIONS (5)
  - ANAEMIA [None]
  - HAEMORRHAGE [None]
  - NEPHRECTOMY [None]
  - RENAL CANCER [None]
  - RHINORRHOEA [None]
